FAERS Safety Report 6246119-4 (Version None)
Quarter: 2009Q2

REPORT INFORMATION
  Report Type: 
  Country: None (occurrence: None)
  Receive Date: 20090626
  Receipt Date: 20090319
  Transmission Date: 20091009
  Serious: No
  Sender: FDA-Public Use
  Company Number: A0774331A

PATIENT
  Sex: Male

DRUGS (7)
  1. IMITREX [Suspect]
     Indication: MIGRAINE
     Dosage: 25MG AS REQUIRED
     Route: 048
  2. AMBIEN [Concomitant]
  3. VIAGRA [Concomitant]
  4. VITAMINS [Concomitant]
  5. MSM [Concomitant]
  6. GLUCOSAMINE CHONDROITIN [Concomitant]
  7. GARLIC [Concomitant]

REACTIONS (1)
  - DRUG ADMINISTRATION ERROR [None]
